FAERS Safety Report 14919173 (Version 1)
Quarter: 2018Q2

REPORT INFORMATION
  Report Type: Spontaneous
  Country: US (occurrence: US)
  Receive Date: 20180521
  Receipt Date: 20180521
  Transmission Date: 20180711
  Serious: No
  Sender: FDA-Public Use
  Company Number: US-009507513-1805USA008570

PATIENT
  Sex: Male

DRUGS (1)
  1. ZOCOR [Suspect]
     Active Substance: SIMVASTATIN
     Indication: HYPERLIPIDAEMIA
     Dosage: 40 MG, UNK
     Route: 048
     Dates: end: 20160615

REACTIONS (1)
  - Low density lipoprotein abnormal [Unknown]

NARRATIVE: CASE EVENT DATE: 201606
